FAERS Safety Report 6595730-X (Version None)
Quarter: 2010Q1

REPORT INFORMATION
  Report Type: 
  Country: None (occurrence: None)
  Receive Date: 20100219
  Receipt Date: 20100219
  Transmission Date: 20100710
  Serious: Yes (Hospitalization, Disabling, Other)
  Sender: FDA-Public Use
  Company Number: None

PATIENT
  Age: 81 Year
  Sex: Female
  Weight: 68.0396 kg

DRUGS (4)
  1. RECLAST [Suspect]
     Indication: FALL
     Dosage: IV INJECTION/ INFUSION 1YEARLY
     Dates: start: 20090928
  2. RECLAST [Suspect]
     Indication: FRACTURE
     Dosage: IV INJECTION/ INFUSION 1YEARLY
     Dates: start: 20090928
  3. RECLAST [Suspect]
     Indication: OSTEOPENIA
     Dosage: IV INJECTION/ INFUSION 1YEARLY
     Dates: start: 20090928
  4. VITAMINS [Concomitant]

REACTIONS (15)
  - ABDOMINAL PAIN [None]
  - ASTHENIA [None]
  - BONE PAIN [None]
  - CHILLS [None]
  - FATIGUE [None]
  - GASTROINTESTINAL PAIN [None]
  - HYPERHIDROSIS [None]
  - INSOMNIA [None]
  - NAUSEA [None]
  - OSTEOMALACIA [None]
  - OSTEOPETROSIS [None]
  - PALLOR [None]
  - TREMOR [None]
  - UNEVALUABLE EVENT [None]
  - WEIGHT DECREASED [None]
